FAERS Safety Report 11522571 (Version 2)
Quarter: 2017Q1

REPORT INFORMATION
  Report Type: Spontaneous
  Country: US (occurrence: US)
  Receive Date: 20150903
  Receipt Date: 20170321
  Transmission Date: 20170428
  Serious: Yes (Other)
  Sender: FDA-Public Use
  Company Number: US-ELI_LILLY_AND_COMPANY-US201210009811

PATIENT
  Age: 58 Year
  Sex: Female

DRUGS (6)
  1. CRYSELLE [Concomitant]
     Active Substance: ETHINYL ESTRADIOL\NORGESTREL
  2. ATIVAN [Concomitant]
     Active Substance: LORAZEPAM
  3. LORTAB [Concomitant]
     Active Substance: ACETAMINOPHEN\HYDROCODONE BITARTRATE
  4. MAXZIDE [Concomitant]
     Active Substance: HYDROCHLOROTHIAZIDE\TRIAMTERENE
  5. CYMBALTA [Suspect]
     Active Substance: DULOXETINE HYDROCHLORIDE
     Indication: DEPRESSION
     Dosage: 60 MG, QD
     Route: 048
     Dates: start: 20100331, end: 201212
  6. AMBIEN [Concomitant]
     Active Substance: ZOLPIDEM TARTRATE

REACTIONS (17)
  - Insomnia [Unknown]
  - Vomiting [Recovered/Resolved]
  - Drug withdrawal syndrome [Recovered/Resolved]
  - Fatigue [Unknown]
  - Anxiety [Unknown]
  - Hypoaesthesia [Recovered/Resolved]
  - Diarrhoea [Unknown]
  - Hyperhidrosis [Unknown]
  - Dizziness [Unknown]
  - Suicidal ideation [Unknown]
  - Nausea [Recovered/Resolved]
  - Lethargy [Unknown]
  - Hot flush [Recovered/Resolved]
  - Headache [Unknown]
  - Affect lability [Unknown]
  - Dysphoria [Unknown]
  - Feeling of body temperature change [Recovered/Resolved]

NARRATIVE: CASE EVENT DATE: 20121217
